FAERS Safety Report 14861546 (Version 1)
Quarter: 2018Q2

REPORT INFORMATION
  Report Type: Spontaneous
  Country: US (occurrence: US)
  Receive Date: 20180423
  Receipt Date: 20180423
  Transmission Date: 20180711
  Serious: Yes (Disabling)
  Sender: FDA-Public Use
  Company Number: None

PATIENT
  Age: 67 Year
  Sex: Female
  Weight: 58.05 kg

DRUGS (7)
  1. RESTASIS [Concomitant]
     Active Substance: CYCLOSPORINE
  2. DOXYCYCLINE. [Concomitant]
     Active Substance: DOXYCYCLINE
  3. BETAMETHASONE. [Concomitant]
     Active Substance: BETAMETHASONE
  4. NIACINAMIDE [Concomitant]
     Active Substance: NIACINAMIDE
  5. FISH OIL [Concomitant]
     Active Substance: FISH OIL
  6. PROLIA [Suspect]
     Active Substance: DENOSUMAB
     Indication: OSTEOPOROSIS
     Dates: start: 20150508, end: 20180404
  7. BYSTOLIC [Concomitant]
     Active Substance: NEBIVOLOL HYDROCHLORIDE

REACTIONS (5)
  - Blister [None]
  - Pruritus [None]
  - Skin infection [None]
  - Pemphigoid [None]
  - Skin lesion [None]

NARRATIVE: CASE EVENT DATE: 20171012
